FAERS Safety Report 6244283-4 (Version None)
Quarter: 2009Q2

REPORT INFORMATION
  Report Type: 
  Country: None (occurrence: None)
  Receive Date: 20090625
  Receipt Date: 20090616
  Transmission Date: 20091009
  Serious: Yes (Hospitalization)
  Sender: FDA-Public Use
  Company Number: FR-B.I. PHARMACEUTICALS,INC./RIDGEFIELD-2009-FF-00429FF

PATIENT
  Sex: Male

DRUGS (3)
  1. VIRAMUNE [Suspect]
     Indication: HIV TEST POSITIVE
     Dosage: 200 MG
     Route: 048
     Dates: start: 20081208, end: 20081223
  2. VIRAMUNE [Suspect]
     Dosage: 400 MG
     Route: 048
     Dates: start: 20081224, end: 20090117
  3. TRUVADA [Concomitant]
     Dates: start: 20080908

REACTIONS (3)
  - ATROPHIC GLOSSITIS [None]
  - PRURITUS GENERALISED [None]
  - RASH GENERALISED [None]
